FAERS Safety Report 5322596-8 (Version None)
Quarter: 2007Q2

REPORT INFORMATION
  Report Type: 
  Country: None (occurrence: None)
  Receive Date: 20070511
  Receipt Date: 20070504
  Transmission Date: 20071010
  Serious: Yes (Hospitalization)
  Sender: FDA-Public Use
  Company Number: IT-SANOFI-SYNTHELABO-F01200601557

PATIENT
  Sex: Male

DRUGS (6)
  1. TRIATEC [Concomitant]
     Dates: start: 20040615
  2. NORVASC [Concomitant]
     Dates: start: 20060328, end: 20060727
  3. BEVACIZUMAB [Suspect]
     Route: 042
     Dates: start: 20060612, end: 20060612
  4. LEUCOVORIN CALCIUM [Suspect]
     Dosage: 345 MG TWICE EVERY 2 WEEKS
     Route: 042
     Dates: start: 20060612, end: 20060613
  5. FLUOROURACIL [Suspect]
     Dosage: 1032 MG TWICE EVERY 2 WEEKS
     Route: 042
     Dates: start: 20060612, end: 20060613
  6. OXALIPLATIN [Suspect]
     Indication: COLON CANCER
     Route: 042
     Dates: start: 20060612, end: 20060612

REACTIONS (2)
  - ANAL FISTULA [None]
  - VOMITING [None]
